FAERS Safety Report 22081684 (Version 2)
Quarter: 2023Q1

REPORT INFORMATION
  Report Type: Spontaneous
  Country: BR (occurrence: BR)
  Receive Date: 20230310
  Receipt Date: 20230317
  Transmission Date: 20230418
  Serious: Yes (Other)
  Sender: FDA-Public Use
  Company Number: BR-CELLTRION INC.-2022BR015882

PATIENT

DRUGS (15)
  1. INFLIXIMAB [Suspect]
     Active Substance: INFLIXIMAB
     Indication: Rheumatoid arthritis
     Dosage: 5 AMPOULES EVERY 45 DAYS
     Route: 042
     Dates: start: 20220720
  2. BENICAR HCT [Concomitant]
     Active Substance: HYDROCHLOROTHIAZIDE\OLMESARTAN MEDOXOMIL
     Indication: Hypertension
     Dosage: 1 CAPSULE A DAY
     Route: 048
     Dates: start: 2014
  3. OMEPRAZOLE [Concomitant]
     Active Substance: OMEPRAZOLE
     Dosage: 2 TABLET PER DAY
     Route: 048
     Dates: start: 2007
  4. OMEPRAZOLE [Concomitant]
     Active Substance: OMEPRAZOLE
     Dosage: 1 CAPSULE A DAY, 30 YEARS AGO
     Route: 048
  5. DOZEMAST [Concomitant]
     Indication: Hypovitaminosis
     Dosage: 1 TABLET  A DAY
     Route: 048
     Dates: start: 202206
  6. CYMBALTA [Concomitant]
     Active Substance: DULOXETINE HYDROCHLORIDE
     Dosage: 1 TABLET  A DAY
     Route: 048
     Dates: start: 2018
  7. CYMBALTA [Concomitant]
     Active Substance: DULOXETINE HYDROCHLORIDE
     Indication: Musculoskeletal stiffness
     Dosage: 1 CAPSULE A DAY, 8 YEARS AGO
     Route: 048
  8. PREGABALIN [Concomitant]
     Active Substance: PREGABALIN
     Indication: Sleep disorder
     Dosage: 1 TABLET  A DAY
     Route: 048
     Dates: start: 202112
  9. PREGABALIN [Concomitant]
     Active Substance: PREGABALIN
     Indication: Pain
  10. PREGABALIN [Concomitant]
     Active Substance: PREGABALIN
     Indication: Sleep disorder
     Dosage: 1 CAPSULE A DAY, 5 MONTHS AGO
     Route: 048
  11. PREGABALIN [Concomitant]
     Active Substance: PREGABALIN
     Indication: Pain
  12. NITROFURANTOIN [Concomitant]
     Active Substance: NITROFURANTOIN
     Indication: Urinary tract infection
     Dosage: 1 CAPSULE A DAY, 1 MONTH AGO
     Route: 048
  13. IMUNEM [Concomitant]
     Indication: Immune enhancement therapy
     Dosage: 1 CAPSULE A DAY, 4 MONTHS AGO
     Route: 048
  14. PILOCARPINE [Concomitant]
     Active Substance: PILOCARPINE
     Indication: Pain
     Dosage: 1 CAPSULE A DAY
     Route: 048
  15. PILOCARPINE [Concomitant]
     Active Substance: PILOCARPINE
     Indication: Sleep disorder

REACTIONS (14)
  - COVID-19 [Unknown]
  - Wheezing [Unknown]
  - Nasal congestion [Unknown]
  - Productive cough [Unknown]
  - Influenza [Unknown]
  - Nasopharyngitis [Unknown]
  - Pain in extremity [Unknown]
  - Arthralgia [Unknown]
  - Dyspnoea [Unknown]
  - Illness [Unknown]
  - Pyrexia [Unknown]
  - Headache [Unknown]
  - Off label use [Unknown]
  - Intentional dose omission [Unknown]

NARRATIVE: CASE EVENT DATE: 20221114
